FAERS Safety Report 23612418 (Version 1)
Quarter: 2024Q1

REPORT INFORMATION
  Report Type: Spontaneous
  Country: US (occurrence: US)
  Receive Date: 20240308
  Receipt Date: 20240308
  Transmission Date: 20240410
  Serious: No
  Sender: FDA-Public Use
  Company Number: US-PFIZER INC-PV202300031548

PATIENT
  Age: 87 Year
  Sex: Male
  Weight: 68.04 kg

DRUGS (7)
  1. VYNDAMAX [Suspect]
     Active Substance: TAFAMIDIS
     Indication: Amyloidosis
     Dosage: 61MG CAPSULE DAILY
     Dates: start: 20210913, end: 20240207
  2. TACROLIMUS [Concomitant]
     Active Substance: TACROLIMUS
     Indication: Renal transplant
     Dosage: 1MG IN THE MORNING AND .5MG AT NIGHT
     Dates: start: 2010
  3. ELIQUIS [Concomitant]
     Active Substance: APIXABAN
     Indication: Thrombosis
     Dosage: 2.5MG IN THE MORNING AND 2.5MG IN THE EVENING (STARTED TAKING PROBABLY 2-3 YEARS AGO)
  4. ELIQUIS [Concomitant]
     Active Substance: APIXABAN
     Indication: Cerebrovascular accident
  5. DOFETILIDE [Concomitant]
     Active Substance: DOFETILIDE
     Indication: Atrial fibrillation
     Dosage: 500MCG IN THE MORNING AND 500MCG IN THE EVENING
     Dates: start: 2019
  6. TORSEMIDE [Concomitant]
     Active Substance: TORSEMIDE
     Indication: Oedema
     Dosage: 10MG TABLET IN THE MORNING (STARTED TAKING PROBABLY 2-3 YEARS AGO)
  7. VITAMIN B12 [Concomitant]
     Active Substance: CYANOCOBALAMIN
     Indication: Amnesia
     Dosage: 1000MCG SUBLINGUAL ONCE A WEEK (STARTED TAKING PROBABLY 5-10 YEARS AGO)
     Route: 060

REACTIONS (2)
  - Heart rate increased [Not Recovered/Not Resolved]
  - Blood pressure diastolic increased [Unknown]

NARRATIVE: CASE EVENT DATE: 20240208
